FAERS Safety Report 4335071-4 (Version None)
Quarter: 2004Q2

REPORT INFORMATION
  Report Type: 
  Country: None (occurrence: None)
  Receive Date: 20040405
  Receipt Date: 20040329
  Transmission Date: 20050107
  Serious: Yes (Death)
  Sender: FDA-Public Use
  Company Number: STA-AE-04-MTX-127

PATIENT
  Age: 72 Year
  Sex: Female

DRUGS (2)
  1. METHOTREXATE [Suspect]
     Indication: RHEUMATOID ARTHRITIS
     Dosage: 10 MG 1X PER 1 WK
     Dates: start: 19980101
  2. REMICADE [Suspect]
     Indication: RHEUMATOID ARTHRITIS
     Dosage: 3MG/KG, INTRAVENOUS
     Route: 042

REACTIONS (7)
  - ALVEOLITIS FIBROSING [None]
  - DRUG INTERACTION [None]
  - DYSPNOEA [None]
  - HYPOXIA [None]
  - LUNG INFILTRATION [None]
  - PULMONARY FIBROSIS [None]
  - PYREXIA [None]
